FAERS Safety Report 9723658 (Version 2)
Quarter: 2013Q4

REPORT INFORMATION
  Report Type: Spontaneous
  Country: FR (occurrence: FR)
  Receive Date: 20131202
  Receipt Date: 20131209
  Transmission Date: 20140711
  Serious: Yes (Hospitalization)
  Sender: FDA-Public Use
  Company Number: FR-GLAXOSMITHKLINE-B0946920A

PATIENT
  Age: 77 Year
  Sex: Female

DRUGS (4)
  1. ARIXTRA [Suspect]
     Indication: THROMBOPHLEBITIS
     Dosage: 7.5MG PER DAY
     Route: 058
     Dates: start: 201305, end: 201309
  2. PARACETAMOL [Concomitant]
     Route: 048
  3. COTAREG [Concomitant]
     Indication: HYPERTENSION
     Dosage: 1TAB PER DAY
     Route: 048
  4. INEGY [Concomitant]
     Indication: HYPERCHOLESTEROLAEMIA
     Dosage: 1TAB PER DAY
     Route: 048

REACTIONS (3)
  - Skin necrosis [Recovering/Resolving]
  - Anaemia [Unknown]
  - Incorrect drug administration duration [Unknown]
